FAERS Safety Report 18517188 (Version 2)
Quarter: 2020Q4

REPORT INFORMATION
  Report Type: Spontaneous
  Country: RO (occurrence: RO)
  Receive Date: 20201118
  Receipt Date: 20201124
  Transmission Date: 20210114
  Serious: Yes (Life-Threatening, Hospitalization, Other)
  Sender: FDA-Public Use
  Company Number: RO-PFIZER INC-2020453000

PATIENT
  Age: 61 Year
  Sex: Female

DRUGS (3)
  1. CYTARABINE. [Suspect]
     Active Substance: CYTARABINE
     Indication: ACUTE LYMPHOCYTIC LEUKAEMIA
     Dosage: 500 MG/M2, CYCLIC (FREQ:3 {CYCLICAL};BID AT DAY 2 AND DAY 3)
  2. METHOTREXATE. [Suspect]
     Active Substance: METHOTREXATE
     Indication: ACUTE LYMPHOCYTIC LEUKAEMIA
     Dosage: UNK, CYCLIC (1 G/M2 (FREQ:3 {CYCLICAL};AT DAY 1))
  3. IMATINIB. [Concomitant]
     Active Substance: IMATINIB MESYLATE
     Indication: ACUTE LYMPHOCYTIC LEUKAEMIA
     Dosage: 600 MG, 1X/DAY

REACTIONS (9)
  - Stenotrophomonas infection [Recovered/Resolved]
  - Respiratory failure [Recovered/Resolved]
  - Pancytopenia [Recovered/Resolved]
  - Thrombocytopenia [Recovered/Resolved]
  - Acute respiratory distress syndrome [Recovered/Resolved]
  - Pleural effusion [Recovered/Resolved]
  - Neutropenia [Recovered/Resolved]
  - Bone marrow failure [Recovered/Resolved]
  - Pulmonary haemorrhage [Recovered/Resolved]
